FAERS Safety Report 10625331 (Version 1)
Quarter: 2014Q4

REPORT INFORMATION
  Report Type: Spontaneous
  Country: US (occurrence: None)
  Receive Date: 20141202
  Receipt Date: 20141202
  Transmission Date: 20150529
  Serious: Yes (Other)
  Sender: FDA-Public Use
  Company Number: 2014SUP00093

PATIENT
  Age: 11 Year
  Sex: Male
  Weight: 45.4 kg

DRUGS (4)
  1. OXTELLAR XR [Suspect]
     Active Substance: OXCARBAZEPINE
     Indication: EPILEPSY
     Dosage: 150MG, 1X/DAY, ORAL
     Route: 048
     Dates: start: 201305
  2. OXTELLAR XR [Suspect]
     Active Substance: OXCARBAZEPINE
     Indication: EPILEPSY
     Dosage: 1200MG, 1X/DAY ORAL
     Route: 048
     Dates: start: 201305
  3. SIMPLEX [Concomitant]
  4. UNSPECIFIED THYROID MEDICATION [Concomitant]
     Active Substance: UNSPECIFIED INGREDIENT

REACTIONS (3)
  - Aura [None]
  - Seizure [None]
  - Drug ineffective [None]

NARRATIVE: CASE EVENT DATE: 20141114
